FAERS Safety Report 7082892-3 (Version None)
Quarter: 2010Q4

REPORT INFORMATION
  Report Type: 
  Country: None (occurrence: None)
  Receive Date: 20101104
  Receipt Date: 20100720
  Transmission Date: 20110411
  Serious: No
  Sender: FDA-Public Use
  Company Number: US-PFIZER INC-2010090448

PATIENT
  Age: 16 Year
  Sex: Female
  Weight: 56.689 kg

DRUGS (3)
  1. DOXYCYCLINE HYCLATE [Suspect]
     Dosage: UNK
  2. TRIAZ [Concomitant]
     Dosage: 3 %, 1X/DAY
  3. TRETINOIN [Concomitant]
     Dosage: STANDARD DOSE
     Route: 061

REACTIONS (1)
  - DRUG INEFFECTIVE [None]
